FAERS Safety Report 13068126 (Version 1)
Quarter: 2016Q4

REPORT INFORMATION
  Report Type: Spontaneous
  Country: US (occurrence: US)
  Receive Date: 20161228
  Receipt Date: 20161228
  Transmission Date: 20170207
  Serious: Yes (Other)
  Sender: FDA-Public Use
  Company Number: PHHY2016US175517

PATIENT
  Age: 55 Year
  Sex: Female

DRUGS (9)
  1. CABERGOLINE. [Suspect]
     Active Substance: CABERGOLINE
     Indication: GASTRINOMA MALIGNANT
  2. PANTOPRAZOLE [Concomitant]
     Active Substance: PANTOPRAZOLE SODIUM
     Indication: PRODUCT USED FOR UNKNOWN INDICATION
     Route: 065
  3. SPIRONOLACTONE. [Concomitant]
     Active Substance: SPIRONOLACTONE
     Indication: PRODUCT USED FOR UNKNOWN INDICATION
     Dosage: 25 MG, BID
     Route: 065
  4. PASIREOTIDE [Suspect]
     Active Substance: PASIREOTIDE
     Indication: ECTOPIC ACTH SYNDROME
     Route: 065
  5. SANDOSTATIN [Suspect]
     Active Substance: OCTREOTIDE ACETATE
     Indication: ECTOPIC ACTH SYNDROME
     Route: 065
  6. SANDOSTATIN [Suspect]
     Active Substance: OCTREOTIDE ACETATE
     Indication: GASTRINOMA MALIGNANT
  7. CABERGOLINE. [Suspect]
     Active Substance: CABERGOLINE
     Indication: ECTOPIC ACTH SYNDROME
     Dosage: UNK, QW2 (TWICE WEEKLY)
     Route: 065
  8. FUROSEMIDE. [Concomitant]
     Active Substance: FUROSEMIDE
     Indication: PRODUCT USED FOR UNKNOWN INDICATION
     Dosage: 40 MG, QD
     Route: 065
  9. PASIREOTIDE [Suspect]
     Active Substance: PASIREOTIDE
     Indication: GASTRINOMA MALIGNANT

REACTIONS (2)
  - Blood cortisol decreased [Unknown]
  - Hypotension [Unknown]
